FAERS Safety Report 5123150-3 (Version None)
Quarter: 2006Q4

REPORT INFORMATION
  Report Type: 
  Country: None (occurrence: None)
  Receive Date: 20061005
  Receipt Date: 20060922
  Transmission Date: 20070319
  Serious: Yes (Death, Other)
  Sender: FDA-Public Use
  Company Number: 2005151247

PATIENT
  Age: 48 Year
  Sex: Female
  Weight: 150.1406 kg

DRUGS (4)
  1. NEURONTIN [Suspect]
     Indication: ANXIETY
  2. OXYCODONE HCL [Suspect]
  3. QUETIAPINE FUMARATE [Suspect]
  4. PAROXETINE [Suspect]

REACTIONS (3)
  - COMPLETED SUICIDE [None]
  - DRUG INEFFECTIVE [None]
  - MULTIPLE DRUG OVERDOSE INTENTIONAL [None]
